FAERS Safety Report 20875237 (Version 1)
Quarter: 2022Q2

REPORT INFORMATION
  Report Type: Spontaneous
  Country: US (occurrence: US)
  Receive Date: 20220526
  Receipt Date: 20220526
  Transmission Date: 20220721
  Serious: Yes (Hospitalization)
  Sender: FDA-Public Use
  Company Number: US-STRIDES ARCOLAB LIMITED-2022SP002791

PATIENT
  Age: 40 Year
  Sex: Female

DRUGS (3)
  1. VANCOMYCIN [Suspect]
     Active Substance: VANCOMYCIN
     Indication: Staphylococcal bacteraemia
     Dosage: 1250 MILLIGRAM, EVERY 8 HOURS
     Route: 065
  2. DALBAVANCIN [Suspect]
     Active Substance: DALBAVANCIN
     Indication: Staphylococcal bacteraemia
     Dosage: UNK, EVERY 2 WEEKS
     Route: 042
  3. DALBAVANCIN [Suspect]
     Active Substance: DALBAVANCIN
     Indication: Prophylaxis
     Dosage: 1500 MILLIGRAM, FIRST DOSE, INTRAVENOUS INFUSION
     Route: 050

REACTIONS (1)
  - Drug ineffective [Unknown]
